FAERS Safety Report 10425143 (Version 1)
Quarter: 2014Q3

REPORT INFORMATION
  Report Type: Spontaneous
  Country: JP (occurrence: JP)
  Receive Date: 20140902
  Receipt Date: 20140902
  Transmission Date: 20150326
  Serious: Yes (Death, Other)
  Sender: FDA-Public Use
  Company Number: PHHY2009JP072186

PATIENT
  Age: 75 Year
  Sex: Male

DRUGS (2)
  1. GLIVEC [Suspect]
     Active Substance: IMATINIB MESYLATE
     Indication: CHRONIC MYELOID LEUKAEMIA
     Dosage: UNK UKN, UNK
  2. SPRYCEL [Suspect]
     Active Substance: DASATINIB
     Dosage: UNK UKN, UNK

REACTIONS (3)
  - Diarrhoea [Unknown]
  - Death [Fatal]
  - Ascites [Unknown]
